FAERS Safety Report 4911339-5 (Version None)
Quarter: 2006Q1

REPORT INFORMATION
  Report Type: 
  Country: None (occurrence: None)
  Receive Date: 20060214
  Receipt Date: 20050621
  Transmission Date: 20060701
  Serious: Yes (Hospitalization)
  Sender: FDA-Public Use
  Company Number: US-ABBOTT-05P-163-0303714-00

PATIENT
  Sex: Female
  Weight: 53.572 kg

DRUGS (5)
  1. HUMIRA [Suspect]
     Indication: RHEUMATOID ARTHRITIS
     Route: 058
     Dates: start: 20030101
  2. BACTRIM [Concomitant]
     Indication: DRUG USE FOR UNKNOWN INDICATION
  3. KLINOPRIL [Concomitant]
     Indication: BLOOD PRESSURE INCREASED
  4. ANTIDEPRESSANTS [Concomitant]
     Indication: DEPRESSION
  5. CETIRIZINE HYDROCHLORIDE [Concomitant]
     Indication: DRUG USE FOR UNKNOWN INDICATION

REACTIONS (5)
  - ARTHRALGIA [None]
  - ARTHRITIS [None]
  - DRUG INEFFECTIVE [None]
  - MYALGIA [None]
  - PYREXIA [None]
